FAERS Safety Report 4494125-2 (Version None)
Quarter: 2004Q4

REPORT INFORMATION
  Report Type: 
  Country: None (occurrence: None)
  Receive Date: 20041105
  Receipt Date: 20041026
  Transmission Date: 20050328
  Serious: Yes (Hospitalization)
  Sender: FDA-Public Use
  Company Number: US-BRISTOL-MYERS SQUIBB COMPANY-12745113

PATIENT
  Age: 46 Year
  Sex: Male
  Weight: 129 kg

DRUGS (4)
  1. CARBOPLATIN [Suspect]
     Indication: OESOPHAGEAL CARCINOMA
     Dosage: AUC 6 INITIAL DOSE: 30-AUG-2004
     Dates: start: 20040920, end: 20040920
  2. TAXOL [Suspect]
     Indication: OESOPHAGEAL CARCINOMA
     Dosage: 200 MG/M2 INITIAL DOSE: 30-AUG-2004
     Dates: start: 20040920, end: 20040904
  3. FLUOROURACIL [Suspect]
     Indication: OESOPHAGEAL CARCINOMA
     Dosage: 225 MG/M2 INITIAL DOSE: 30-AUG-2004
     Dates: start: 20040927, end: 20040927
  4. RADIATION THERAPY [Suspect]
     Indication: OESOPHAGEAL CARCINOMA
     Dates: start: 20040830, end: 20041007

REACTIONS (4)
  - DEHYDRATION [None]
  - DIARRHOEA [None]
  - FEBRILE NEUTROPENIA [None]
  - MUCOSAL INFLAMMATION [None]
